FAERS Safety Report 23982312 (Version 1)
Quarter: 2024Q2

REPORT INFORMATION
  Report Type: Spontaneous
  Country: DE (occurrence: DE)
  Receive Date: 20240617
  Receipt Date: 20240617
  Transmission Date: 20240716
  Serious: Yes (Hospitalization, Other)
  Sender: FDA-Public Use
  Company Number: DE-002147023-NVSC2024DE125294

PATIENT
  Sex: Male
  Weight: 101 kg

DRUGS (1)
  1. PLUVICTO [Suspect]
     Active Substance: LUTETIUM LU-177 VIPIVOTIDE TETRAXETAN
     Indication: Prostate cancer
     Dosage: UNK (1X)
     Route: 042
     Dates: start: 20240409

REACTIONS (2)
  - VIth nerve paralysis [Not Recovered/Not Resolved]
  - Infarction [Unknown]

NARRATIVE: CASE EVENT DATE: 20240426
